FAERS Safety Report 18895537 (Version 1)
Quarter: 2021Q1

REPORT INFORMATION
  Report Type: Not Available
  Country: US (occurrence: US)
  Receive Date: 20210216
  Receipt Date: 20210216
  Transmission Date: 20210420
  Serious: No
  Sender: FDA-Public Use
  Company Number: US-NEUROCRINE BIOSCIENCES INC.-2021NBI00507

PATIENT
  Age: 70 Year
  Sex: Female

DRUGS (11)
  1. INGREZZA [Suspect]
     Active Substance: VALBENAZINE
     Indication: TARDIVE DYSKINESIA
     Dosage: 40 X 2 CAPSULES
     Route: 048
     Dates: start: 202001, end: 202012
  2. ALENDRONATE [Concomitant]
     Active Substance: ALENDRONATE SODIUM
  3. MELOXICAM. [Concomitant]
     Active Substance: MELOXICAM
  4. ONDANSETRON [Concomitant]
     Active Substance: ONDANSETRON
  5. LAMOTRIGINE. [Concomitant]
     Active Substance: LAMOTRIGINE
  6. GABAPENTIN. [Concomitant]
     Active Substance: GABAPENTIN
  7. TRINTELLIX [Concomitant]
     Active Substance: VORTIOXETINE HYDROBROMIDE
  8. FAMOTIDINE. [Concomitant]
     Active Substance: FAMOTIDINE
  9. TRAZODONE [Concomitant]
     Active Substance: TRAZODONE HYDROCHLORIDE
  10. LORAZEPAM. [Concomitant]
     Active Substance: LORAZEPAM
  11. ROSUVASTATIN. [Concomitant]
     Active Substance: ROSUVASTATIN

REACTIONS (1)
  - Adverse drug reaction [Unknown]

NARRATIVE: CASE EVENT DATE: 2020
